FAERS Safety Report 5586295-X (Version None)
Quarter: 2008Q1

REPORT INFORMATION
  Report Type: 
  Country: None (occurrence: None)
  Receive Date: 20080110
  Receipt Date: 20080102
  Transmission Date: 20080703
  Serious: Yes (Other)
  Sender: FDA-Public Use
  Company Number: US-BAYER-US-2006-007215

PATIENT
  Age: 57 Year
  Sex: Female
  Weight: 63 kg

DRUGS (14)
  1. CLIMARA [Suspect]
     Indication: MENOPAUSE
     Route: 062
     Dates: start: 19990101, end: 20000101
  2. PREMARIN [Suspect]
     Indication: MENOPAUSE
     Route: 048
     Dates: start: 19940701, end: 19980301
  3. PROVERA [Suspect]
     Indication: MENOPAUSE
     Dates: start: 19940701, end: 19970101
  4. ESTRACE [Suspect]
     Indication: MENOPAUSE
     Dosage: UNIT DOSE: 1 MG
     Dates: start: 19980401, end: 19981201
  5. VIVELLE [Suspect]
     Indication: MENOPAUSE
     Dates: start: 20000601, end: 20020201
  6. PROMETRIUM [Suspect]
     Indication: MENOPAUSE
     Dates: start: 19991101, end: 20010401
  7. MEDROXYPROGESTERONE ACETATE [Suspect]
     Indication: MENOPAUSE
     Dates: start: 19940101, end: 19980101
  8. ELMIRON [Concomitant]
  9. KENALOG [Concomitant]
     Indication: SKIN REACTION
  10. CHLORHEXIDINE GLUCONATE [Concomitant]
     Dates: start: 19971226
  11. ACYCLOVIR [Concomitant]
     Dates: start: 19980401
  12. ZOVIRAX [Concomitant]
  13. ORAL CONTRACEPTIVE NOS [Concomitant]
     Dates: start: 19630901, end: 19690101
  14. ETODOLAC NOS [Concomitant]

REACTIONS (1)
  - BREAST CANCER IN SITU [None]
